FAERS Safety Report 7388270-1 (Version None)
Quarter: 2011Q2

REPORT INFORMATION
  Report Type: 
  Country: None (occurrence: None)
  Receive Date: 20110401
  Receipt Date: 20091122
  Transmission Date: 20111010
  Serious: Yes (Death, Hospitalization, Other)
  Sender: FDA-Public Use
  Company Number: US-BAYER-200940621NA

PATIENT
  Sex: Male
  Weight: 71 kg

DRUGS (13)
  1. AMBIEN [Concomitant]
     Dosage: 10 MG, QD
     Route: 048
     Dates: start: 20060201
  2. ACETYLSALICYLIC ACID SRT [Concomitant]
     Dosage: 81 MG, QD
     Route: 048
  3. METOPROLOL [Concomitant]
     Dosage: 100 MG, QD
     Route: 048
  4. ROCEPHIN [Concomitant]
     Dosage: 2 G, QD
     Route: 042
     Dates: start: 20060201
  5. TRASYLOL [Suspect]
     Indication: CARDIAC OPERATION
     Route: 042
     Dates: start: 20060602
  6. COUMADIN [Concomitant]
     Route: 048
  7. NATRECOR [Concomitant]
     Dosage: TITRATED
     Route: 042
     Dates: start: 20060201
  8. PROTONIX [Concomitant]
     Dosage: 40 MG, QD
     Route: 048
  9. NORVASC [Concomitant]
     Dosage: 5 MG, BID
     Route: 048
  10. ZITHROMAX [Concomitant]
     Dosage: 500 MG, UNK
     Route: 048
     Dates: start: 20060201
  11. CIPROFLOXACIN [Concomitant]
     Dosage: 500 MG, QD
     Route: 048
     Dates: start: 20060201
  12. COREG [Concomitant]
     Dosage: 3.125 MG, BID
     Route: 048
  13. LASIX [Concomitant]
     Dosage: 20 MG, BID
     Route: 048

REACTIONS (13)
  - INJURY [None]
  - MULTI-ORGAN FAILURE [None]
  - STRESS [None]
  - FEAR [None]
  - DEATH [None]
  - PAIN [None]
  - ANHEDONIA [None]
  - RENAL INJURY [None]
  - RENAL FAILURE [None]
  - EMOTIONAL DISTRESS [None]
  - RENAL IMPAIRMENT [None]
  - UNEVALUABLE EVENT [None]
  - ANXIETY [None]
